FAERS Safety Report 24582051 (Version 2)
Quarter: 2024Q4

REPORT INFORMATION
  Report Type: Spontaneous
  Country: PT (occurrence: PT)
  Receive Date: 20241105
  Receipt Date: 20241203
  Transmission Date: 20250115
  Serious: No
  Sender: CELLTRION
  Company Number: PT-CELLTRION INC.-2024PT027204

PATIENT

DRUGS (2)
  1. RITUXIMAB [Suspect]
     Active Substance: RITUXIMAB
     Indication: Anti-neutrophil cytoplasmic antibody positive vasculitis
     Dosage: COMPLETED TWO RTX PULSES WITHOUT COMPLICATIONS
  2. RITUXIMAB [Suspect]
     Active Substance: RITUXIMAB
     Indication: Scleroderma renal crisis

REACTIONS (1)
  - Intentional product use issue [Unknown]
